FAERS Safety Report 24643926 (Version 1)
Quarter: 2024Q4

REPORT INFORMATION
  Report Type: Spontaneous
  Country: IT (occurrence: IT)
  Receive Date: 20241120
  Receipt Date: 20241120
  Transmission Date: 20250115
  Serious: Yes (Other)
  Sender: EISAI
  Company Number: IT-Eisai-EC-2024-178950

PATIENT
  Age: 79 Year
  Sex: Female

DRUGS (2)
  1. LENVATINIB [Suspect]
     Active Substance: LENVATINIB
     Indication: Uterine cancer
     Dosage: UNKNOWN DOSE AND FREQUENCY
     Route: 048
     Dates: end: 2024
  2. PEMBROLIZUMAB [Suspect]
     Active Substance: PEMBROLIZUMAB
     Indication: Uterine cancer
     Route: 041
     Dates: start: 20221222, end: 202401

REACTIONS (1)
  - Immune-mediated lung disease [Unknown]
